FAERS Safety Report 4897965-0 (Version None)
Quarter: 2006Q1

REPORT INFORMATION
  Report Type: 
  Country: None (occurrence: None)
  Receive Date: 20060201
  Receipt Date: 20060120
  Transmission Date: 20060701
  Serious: Yes (Death, Hospitalization)
  Sender: FDA-Public Use
  Company Number: US-SANOFI-SYNTHELABO-A03200600411

PATIENT
  Sex: Male
  Weight: 79.36 kg

DRUGS (13)
  1. PLAVIX [Suspect]
     Indication: PROPHYLAXIS
     Route: 048
     Dates: start: 19990101
  2. GEMFIBROZIL [Concomitant]
     Route: 048
     Dates: end: 20050416
  3. ZETIA [Concomitant]
     Route: 048
     Dates: end: 20050416
  4. BENICAR [Concomitant]
     Route: 048
     Dates: end: 20050416
  5. ASPIRIN [Concomitant]
     Route: 048
  6. NORVASC [Concomitant]
     Route: 048
  7. TUSSIONEX [Concomitant]
     Dosage: UNK
     Route: 048
     Dates: start: 20050416
  8. NITROLINGUAL [Concomitant]
     Dosage: UNK
     Route: 048
     Dates: start: 20050416
  9. PREVACID [Concomitant]
     Dosage: UNK
     Route: 048
     Dates: start: 20050416
  10. ACYCLOVIR [Concomitant]
     Route: 048
     Dates: start: 20050501
  11. DEXTROMETHORPHAN HYDROBROMIDE [Concomitant]
     Route: 048
     Dates: start: 20050501
  12. ALLOPURINOL [Concomitant]
     Route: 048
     Dates: start: 20050501
  13. HYDROXYUREA [Concomitant]
     Route: 048
     Dates: start: 20050501

REACTIONS (6)
  - ABDOMINAL PAIN UPPER [None]
  - ACUTE MYELOID LEUKAEMIA [None]
  - PLATELET COUNT DECREASED [None]
  - PNEUMONIA [None]
  - PULMONARY HAEMORRHAGE [None]
  - SWELLING [None]
